FAERS Safety Report 10736402 (Version 1)
Quarter: 2015Q1

REPORT INFORMATION
  Report Type: Spontaneous
  Country: US (occurrence: None)
  Receive Date: 20150122
  Receipt Date: 20150122
  Transmission Date: 20150721
  Serious: No
  Sender: FDA-Public Use
  Company Number: None

PATIENT
  Age: 40 Year
  Sex: Male
  Weight: 97.52 kg

DRUGS (2)
  1. TAMIFLU [Suspect]
     Active Substance: OSELTAMIVIR PHOSPHATE
     Indication: INFLUENZA
     Dosage: 1 PILL, ONCE DAILY
     Route: 048
     Dates: start: 20150118, end: 20150118
  2. TAMIFLU [Suspect]
     Active Substance: OSELTAMIVIR PHOSPHATE
     Indication: PROPHYLAXIS
     Dosage: 1 PILL, ONCE DAILY
     Route: 048
     Dates: start: 20150118, end: 20150118

REACTIONS (5)
  - Burning sensation [None]
  - Headache [None]
  - Pruritus [None]
  - Hyperaesthesia [None]
  - Urticaria [None]

NARRATIVE: CASE EVENT DATE: 20150118
